FAERS Safety Report 18619176 (Version 1)
Quarter: 2020Q4

REPORT INFORMATION
  Report Type: Spontaneous
  Country: CA (occurrence: CA)
  Receive Date: 20201215
  Receipt Date: 20201215
  Transmission Date: 20210114
  Serious: Yes (Death, Other)
  Sender: FDA-Public Use
  Company Number: CA-AMGEN-CANSP2020202286

PATIENT
  Age: 60 Year
  Sex: Female

DRUGS (4)
  1. DERMOVAT [BETAMETHASONE VALERATE] [Concomitant]
     Indication: PSORIASIS
  2. OTEZLA [Suspect]
     Active Substance: APREMILAST
     Indication: PSORIASIS
     Dosage: UNK
     Route: 065
     Dates: start: 2016
  3. METHOTREXATE. [Concomitant]
     Active Substance: METHOTREXATE
     Indication: PSORIASIS
  4. SORIATANE [Concomitant]
     Active Substance: ACITRETIN
     Indication: PSORIASIS

REACTIONS (1)
  - Ovarian cancer metastatic [Fatal]
